FAERS Safety Report 8329007 (Version 2)
Quarter: 2012Q4

REPORT INFORMATION
  Report Type: 
  Country: US (occurrence: US)
  Receive Date: 20120110
  Receipt Date: 20121211
  Transmission Date: 20130627
  Serious: Yes (Other)
  Sender: FDA-Public Use
  Company Number: US-ROCHE-776470

PATIENT
  Age: 14 Year
  Sex: Male
  Weight: 57.66 kg

DRUGS (3)
  1. ACCUTANE [Suspect]
     Indication: ACNE
     Route: 048
  2. ACCUTANE [Suspect]
     Dosage: 40 mg daily alternating with 40 mg bid.
     Route: 048
  3. ACCUTANE [Suspect]
     Route: 048
     Dates: start: 19960705, end: 199610

REACTIONS (10)
  - Inflammatory bowel disease [Unknown]
  - Crohn^s disease [Unknown]
  - Intestinal obstruction [Unknown]
  - Depression [Unknown]
  - Irritable bowel syndrome [Unknown]
  - Lip dry [Unknown]
  - Cheilitis [Unknown]
  - Xerosis [Unknown]
  - Epistaxis [Unknown]
  - Blood cholesterol increased [Recovered/Resolved]
